FAERS Safety Report 25214661 (Version 1)
Quarter: 2025Q2

REPORT INFORMATION
  Report Type: Spontaneous
  Country: PL (occurrence: PL)
  Receive Date: 20250418
  Receipt Date: 20250418
  Transmission Date: 20250717
  Serious: Yes (Other)
  Sender: AUROBINDO
  Company Number: PL-JNJFOC-20250372731

PATIENT
  Age: 74 Year

DRUGS (5)
  1. LENALIDOMIDE [Suspect]
     Active Substance: LENALIDOMIDE
     Indication: Plasma cell myeloma
     Dosage: 25 MILLIGRAM, ONCE A DAY
     Route: 065
     Dates: start: 202409
  2. DARZALEX [Suspect]
     Active Substance: DARATUMUMAB
     Indication: Plasma cell myeloma
     Dosage: 1800 MILLIGRAM, EVERY WEEK
     Route: 058
     Dates: start: 202409
  3. DARZALEX [Suspect]
     Active Substance: DARATUMUMAB
     Route: 058
     Dates: start: 202409
  4. DEXAMETHASONE [Suspect]
     Active Substance: DEXAMETHASONE
     Indication: Plasma cell myeloma
     Dosage: 20 MILLIGRAM, EVERY WEEK
     Route: 065
     Dates: start: 202409
  5. ACYCLOVIR [Concomitant]
     Active Substance: ACYCLOVIR
     Indication: Product used for unknown indication
     Route: 065

REACTIONS (1)
  - Spinal fracture [Unknown]
